FAERS Safety Report 8466133-8 (Version None)
Quarter: 2012Q2

REPORT INFORMATION
  Report Type: 
  Country: None (occurrence: None)
  Receive Date: 20120620
  Receipt Date: 20120620
  Transmission Date: 20120825
  Serious: Yes (Hospitalization)
  Sender: FDA-Public Use
  Company Number: None

PATIENT
  Sex: Male
  Weight: 95 kg

DRUGS (22)
  1. ATIVAN [Concomitant]
  2. FILGRASTIM [Concomitant]
  3. FLOMAX [Concomitant]
  4. NICODINE PATCH [Concomitant]
  5. ALLOPURINOL [Concomitant]
  6. MIRALAX [Concomitant]
  7. TRAZODONE HCL [Concomitant]
  8. PROSCAR [Concomitant]
  9. CYCLOPHOSPHAMIDE [Suspect]
     Indication: CHEMOTHERAPY
     Dosage: 1570 ONCE IV BOLUS
     Route: 040
     Dates: start: 20120608, end: 20120608
  10. ETOPOSIDE [Suspect]
     Dosage: 210 ONCE PER DAY X 3 D IV BOLUS
     Route: 040
     Dates: start: 20120608, end: 20120610
  11. IBUPROFEN [Concomitant]
  12. ONDANSETRON [Concomitant]
  13. PEPCID [Concomitant]
  14. MULTI-VITAMIN [Concomitant]
  15. FOLIC ACID [Concomitant]
  16. METFORMIN HCL [Concomitant]
  17. SENNA-MINT WAF [Concomitant]
  18. LANTUS [Concomitant]
  19. ACETOMINOPHEN-HYDROCODONE [Concomitant]
  20. LACTULOSE [Concomitant]
  21. LEXAPRO [Concomitant]
  22. GABAPENTIN [Concomitant]

REACTIONS (5)
  - DIARRHOEA [None]
  - PNEUMONIA [None]
  - FEBRILE NEUTROPENIA [None]
  - BACTERIAL INFECTION [None]
  - BLOOD CULTURE POSITIVE [None]
